FAERS Safety Report 9147430 (Version 1)
Quarter: 2013Q1

REPORT INFORMATION
  Report Type: Report from Study
  Country: US (occurrence: US)
  Receive Date: 20130307
  Receipt Date: 20130307
  Transmission Date: 20140127
  Serious: Yes (Other)
  Sender: FDA-Public Use
  Company Number: US-ABBOTT-13P-163-1058563-00

PATIENT
  Age: 62 None
  Sex: Female
  Weight: 73.55 kg

DRUGS (1)
  1. HUMIRA [Suspect]
     Indication: PSORIASIS
     Dates: start: 200810, end: 201009

REACTIONS (6)
  - Blood disorder [Unknown]
  - Red blood cell count decreased [Unknown]
  - Leukopenia [Unknown]
  - Iron deficiency anaemia [Unknown]
  - Injection site pain [Recovered/Resolved]
  - Psoriasis [Not Recovered/Not Resolved]
